FAERS Safety Report 8704854 (Version 4)
Quarter: 2012Q4

REPORT INFORMATION
  Report Type: 
  Country: IE (occurrence: IE)
  Receive Date: 20120803
  Receipt Date: 20121221
  Transmission Date: 20130627
  Serious: Yes (Other)
  Sender: FDA-Public Use
  Company Number: IE-US-EMD SERONO, INC.-7151046

PATIENT
  Age: 60 Year
  Sex: Male

DRUGS (3)
  1. SAIZEN [Suspect]
     Indication: BRAIN NEOPLASM
     Route: 058
     Dates: start: 20120502
  2. LYRICA [Concomitant]
     Indication: PRODUCT USED FOR UNKNOWN INDICATION
  3. UNSPECIFIED ORAL STEROIDS [Concomitant]
     Indication: PRODUCT USED FOR UNKNOWN INDICATION

REACTIONS (1)
  - Respiratory tract infection [Recovered/Resolved]
